FAERS Safety Report 7172991 (Version 2)
Quarter: 2014Q2

REPORT INFORMATION
  Report Type: Spontaneous
  Country: FR (occurrence: None)
  Receive Date: 20091027
  Receipt Date: 20140415
  Transmission Date: 20141212
  Serious: Yes (Congenital Anomaly, Other)
  Sender: FDA-Public Use
  Company Number: AUR-APL-2009-00902

PATIENT
  Sex: Female

DRUGS (5)
  1. TOPIRAMATE [Suspect]
     Indication: EPILEPSY
     Dosage: 1G/DAY - TRANSPLACENT
     Route: 064
  2. LAMOTRIGINE [Suspect]
     Indication: EPILEPSY
     Dosage: TRANSPLACE
     Route: 064
  3. CLONAZEPAM [Suspect]
     Indication: EPILEPSY
     Dosage: TRANSPLACENTALLY
     Route: 064
  4. OXCARBAZEPINE [Suspect]
     Indication: PRODUCT USED FOR UNKNOWN INDICATION
     Dosage: TRANSPLACENTALLY
     Route: 064
  5. FOLIC ACID [Suspect]
     Indication: PRODUCT USED FOR UNKNOWN INDICATION
     Route: 064

REACTIONS (7)
  - Convulsion [None]
  - Microtia [None]
  - Retrognathia [None]
  - Dysmorphism [None]
  - Low set ears [None]
  - Bone disorder [None]
  - Maternal drugs affecting foetus [None]
